FAERS Safety Report 8737874 (Version 4)
Quarter: 2013Q1

REPORT INFORMATION
  Report Type: Report from Study
  Country: US (occurrence: US)
  Receive Date: 20120823
  Receipt Date: 20130212
  Transmission Date: 20140127
  Serious: Yes (Other)
  Sender: FDA-Public Use
  Company Number: US-009507513-1208USA007770

PATIENT
  Age: 76 None
  Sex: Female
  Weight: 61.22 kg

DRUGS (5)
  1. MK-2452 [Suspect]
     Indication: OCULAR HYPERTENSION
     Dosage: 1 GTT, QD
     Route: 047
     Dates: start: 20120802, end: 20120805
  2. STUDY DRUG (UNSPECIFIED) [Suspect]
     Indication: OCULAR HYPERTENSION
     Dosage: 1 GTT, QD
     Route: 047
     Dates: start: 20120802, end: 20120805
  3. LIPITOR [Concomitant]
  4. LOSARTAN POTASSIUM [Concomitant]
  5. PRILOSEC [Concomitant]

REACTIONS (1)
  - Iritis [Recovered/Resolved]
